FAERS Safety Report 10156630 (Version 1)
Quarter: 2014Q2

REPORT INFORMATION
  Report Type: Spontaneous
  Country: US (occurrence: None)
  Receive Date: 20140505
  Receipt Date: 20140505
  Transmission Date: 20141212
  Serious: Yes (Other)
  Sender: FDA-Public Use
  Company Number: 2014P1003503

PATIENT
  Age: 60 Year
  Sex: Male
  Weight: 77.11 kg

DRUGS (1)
  1. TESTOSTERONE CYPIONATE 200MG/ML [Suspect]
     Indication: BLOOD TESTOSTERONE DECREASED
     Route: 030
     Dates: start: 20140302, end: 20140302

REACTIONS (2)
  - Palpitations [None]
  - Dyspnoea [None]
